FAERS Safety Report 4758293-7 (Version None)
Quarter: 2005Q3

REPORT INFORMATION
  Report Type: 
  Country: None (occurrence: None)
  Receive Date: 20050826
  Receipt Date: 20050601
  Transmission Date: 20060218
  Serious: No
  Sender: FDA-Public Use
  Company Number: WAES 0506USA00377

PATIENT
  Sex: Male

DRUGS (2)
  1. ZETIA [Suspect]
     Dosage: 10 MG/PO;   5 MG/PO
     Route: 048
  2. WELCHOL [Concomitant]

REACTIONS (2)
  - DRUG ADMINISTRATION ERROR [None]
  - MYALGIA [None]
